FAERS Safety Report 8518468-8 (Version None)
Quarter: 2012Q3

REPORT INFORMATION
  Report Type: 
  Country: None (occurrence: None)
  Receive Date: 20120718
  Receipt Date: 20120403
  Transmission Date: 20120928
  Serious: No
  Sender: FDA-Public Use
  Company Number: US-BRISTOL-MYERS SQUIBB COMPANY-16476210

PATIENT
  Age: 72 Year
  Sex: Female
  Weight: 63 kg

DRUGS (2)
  1. WARFARIN SODIUM [Suspect]
     Dosage: PRESCRIPTION #: 10861 0212934
     Dates: start: 20111101
  2. COUMADIN [Suspect]
     Dosage: PRESCRIPTION #: 10861 0212934
     Dates: start: 20120314

REACTIONS (4)
  - RASH PRURITIC [None]
  - TINNITUS [None]
  - GLOSSODYNIA [None]
  - HEADACHE [None]
